FAERS Safety Report 6344223-3 (Version None)
Quarter: 2009Q3

REPORT INFORMATION
  Report Type: 
  Country: None (occurrence: None)
  Receive Date: 20090908
  Receipt Date: 20090825
  Transmission Date: 20100115
  Serious: Yes (Disabling, Other)
  Sender: FDA-Public Use
  Company Number: GB-PFIZER INC-2009259106

PATIENT
  Age: 37 Year

DRUGS (1)
  1. CHAMPIX [Suspect]
     Indication: SMOKING CESSATION THERAPY
     Dosage: 1 MG, 2X/DAY
     Route: 048
     Dates: start: 20090707

REACTIONS (4)
  - ALCOHOL INTOLERANCE [None]
  - AMNESIA [None]
  - COORDINATION ABNORMAL [None]
  - FEELING DRUNK [None]
